FAERS Safety Report 9727755 (Version 1)
Quarter: 2013Q4

REPORT INFORMATION
  Report Type: Spontaneous
  Country: US (occurrence: US)
  Receive Date: 20131203
  Receipt Date: 20131203
  Transmission Date: 20140711
  Serious: No
  Sender: FDA-Public Use
  Company Number: US-ENDO PHARMACEUTICALS INC.-AMIT20130006

PATIENT
  Age: 52 Year
  Sex: Female

DRUGS (2)
  1. AMITRIPTYLINE HCL 25MG [Suspect]
     Indication: FIBROMYALGIA
     Route: 048
     Dates: start: 2002
  2. NEURONTIN [Suspect]
     Indication: PRODUCT USED FOR UNKNOWN INDICATION
     Dosage: UNKNOWN
     Route: 065
     Dates: end: 20130316

REACTIONS (2)
  - Gastrointestinal disorder [Recovering/Resolving]
  - Nasal congestion [Recovering/Resolving]
